FAERS Safety Report 9928048 (Version 1)
Quarter: 2014Q1

REPORT INFORMATION
  Report Type: Report from Study
  Country: US (occurrence: US)
  Receive Date: 20140227
  Receipt Date: 20140227
  Transmission Date: 20141002
  Serious: Yes (Other)
  Sender: FDA-Public Use
  Company Number: US-ROCHE-1355035

PATIENT
  Sex: Female
  Weight: 25.3 kg

DRUGS (2)
  1. NUTROPIN [Suspect]
     Indication: BODY HEIGHT BELOW NORMAL
     Route: 058
     Dates: start: 201402
  2. VITAMIN D3 [Concomitant]
     Route: 048
     Dates: start: 20130904

REACTIONS (1)
  - Scoliosis [Unknown]
